FAERS Safety Report 7610423-5 (Version None)
Quarter: 2011Q3

REPORT INFORMATION
  Report Type: 
  Country: None (occurrence: None)
  Receive Date: 20110715
  Receipt Date: 20110711
  Transmission Date: 20111222
  Serious: No
  Sender: FDA-Public Use
  Company Number: US-PFIZER INC-2011156836

PATIENT
  Sex: Male

DRUGS (7)
  1. CODEINE SULFATE [Suspect]
     Dosage: UNK
  2. ATROPINE SULFATE [Suspect]
     Dosage: UNK
  3. FELDENE [Suspect]
     Dosage: UNK
  4. MEDROL [Suspect]
     Dosage: UNK
  5. LASIX [Suspect]
     Dosage: UNK
  6. CARAFATE [Suspect]
     Dosage: UNK
  7. DALMANE [Suspect]
     Dosage: UNK

REACTIONS (5)
  - GAIT DISTURBANCE [None]
  - HEADACHE [None]
  - VISION BLURRED [None]
  - ASTHENIA [None]
  - TREMOR [None]
